FAERS Safety Report 5408661-5 (Version None)
Quarter: 2007Q3

REPORT INFORMATION
  Report Type: 
  Country: None (occurrence: None)
  Receive Date: 20070713
  Receipt Date: 20070423
  Transmission Date: 20080115
  Serious: Yes (Hospitalization)
  Sender: FDA-Public Use
  Company Number: US-JNJFOC-20060602696

PATIENT
  Age: 37 Year
  Sex: Female
  Weight: 61 kg

DRUGS (6)
  1. ORTHO EVRA [Suspect]
     Indication: CONTRACEPTION
     Dosage: TRANSDERMAL
     Route: 062
     Dates: start: 20030101, end: 20030402
  2. MULTIVITAMIN [Concomitant]
  3. CALCIUM (CALCIUM) [Concomitant]
  4. ASCORBIC ACID [Concomitant]
  5. ACETAMINOPHEN [Concomitant]
  6. PROGESTERONE CREAM (PROGESTERONE) [Concomitant]

REACTIONS (1)
  - CEREBROVASCULAR ACCIDENT [None]
